FAERS Safety Report 20027135 (Version 6)
Quarter: 2023Q1

REPORT INFORMATION
  Report Type: Spontaneous
  Country: US (occurrence: US)
  Receive Date: 20211103
  Receipt Date: 20230209
  Transmission Date: 20230417
  Serious: Yes (Hospitalization, Other)
  Sender: FDA-Public Use
  Company Number: US-UNITED THERAPEUTICS-UNT-2021-021821

PATIENT
  Sex: Male
  Weight: 100.23 kg

DRUGS (6)
  1. TYVASO [Suspect]
     Active Substance: TREPROSTINIL
     Indication: Pulmonary arterial hypertension
     Dosage: UNK
     Dates: start: 20210916
  2. TYVASO [Suspect]
     Active Substance: TREPROSTINIL
     Dosage: 18-72 ?G, QID
     Dates: start: 2021
  3. TYVASO [Suspect]
     Active Substance: TREPROSTINIL
     Dosage: UNK
     Dates: start: 2021
  4. TYVASO DPI [Suspect]
     Active Substance: TREPROSTINIL
     Indication: Pulmonary arterial hypertension
     Dosage: 16 ?G, QID
     Dates: start: 202301
  5. TYVASO DPI [Suspect]
     Active Substance: TREPROSTINIL
     Dosage: UNK
     Dates: start: 20230120
  6. TYVASO DPI [Suspect]
     Active Substance: TREPROSTINIL
     Indication: Pulmonary arterial hypertension
     Dosage: UNK

REACTIONS (17)
  - Gastrointestinal haemorrhage [Unknown]
  - Varices oesophageal [Unknown]
  - Melaena [Unknown]
  - Gastric cancer [Unknown]
  - Cough [Unknown]
  - Dyspepsia [Unknown]
  - Insomnia [Unknown]
  - Laboratory test abnormal [Unknown]
  - Throat irritation [Unknown]
  - Vomiting [Unknown]
  - Faeces discoloured [Unknown]
  - Diarrhoea [Unknown]
  - Oropharyngeal pain [Unknown]
  - Seasonal allergy [Unknown]
  - Weight increased [Unknown]
  - Blood iron decreased [Unknown]
  - Nausea [Unknown]

NARRATIVE: CASE EVENT DATE: 20210101
